FAERS Safety Report 6537416-3 (Version None)
Quarter: 2010Q1

REPORT INFORMATION
  Report Type: 
  Country: None (occurrence: None)
  Receive Date: 20100107
  Receipt Date: 20091222
  Transmission Date: 20100710
  Serious: Yes (Death)
  Sender: FDA-Public Use
  Company Number: 2009AP004922

PATIENT
  Age: 24 Year
  Sex: Female

DRUGS (4)
  1. FLUOXETINE HCL [Suspect]
     Indication: DEPRESSION
  2. FLUOXETINE HCL [Suspect]
     Indication: PSYCHOTIC DISORDER
  3. HALOPERIDOL [Concomitant]
  4. CLORAZEPATE DIPOTASSIUM [Concomitant]

REACTIONS (10)
  - ANURIA [None]
  - BRAIN HERNIATION [None]
  - BRAIN OEDEMA [None]
  - HAEMODYNAMIC INSTABILITY [None]
  - HYPERTHERMIA [None]
  - MYOCLONUS [None]
  - RHABDOMYOLYSIS [None]
  - SEROTONIN SYNDROME [None]
  - SHOCK [None]
  - STEREOTYPY [None]
